FAERS Safety Report 7556645-3 (Version None)
Quarter: 2011Q2

REPORT INFORMATION
  Report Type: 
  Country: None (occurrence: None)
  Receive Date: 20110610
  Receipt Date: 20110527
  Transmission Date: 20111010
  Serious: Yes (Other)
  Sender: FDA-Public Use
  Company Number: FR-JNJFOC-20110601206

PATIENT
  Age: 50 Year
  Sex: 0
  Weight: 130 kg

DRUGS (5)
  1. AZACITIDINE [Suspect]
     Indication: MYELODYSPLASTIC SYNDROME
     Dosage: 75 MA/M2, 1 IN 1 DAY
     Dates: start: 20100301
  2. AZACITIDINE [Suspect]
     Indication: MYELODYSPLASTIC SYNDROME
     Dosage: 75 MA/M2, 1 IN 1 DAY
     Dates: start: 20100401
  3. AZACITIDINE [Suspect]
     Indication: MYELODYSPLASTIC SYNDROME
     Dosage: 75 MA/M2, 1 IN 1 DAY
     Dates: start: 20100201
  4. ZOFRAN [Concomitant]
  5. DECITABINE [Suspect]
     Indication: MYELODYSPLASTIC SYNDROME
     Dosage: 20 MG/M2, 1 IN 1 DAY, INTRAVENOUS
     Route: 042
     Dates: start: 20100701

REACTIONS (1)
  - MYOCARDITIS [None]
